FAERS Safety Report 6790817-0 (Version None)
Quarter: 2010Q2

REPORT INFORMATION
  Report Type: 
  Country: None (occurrence: None)
  Receive Date: 20100624
  Receipt Date: 20100618
  Transmission Date: 20101027
  Serious: Yes (Hospitalization)
  Sender: FDA-Public Use
  Company Number: CH-WYE-G06139810

PATIENT
  Age: 68 Year
  Sex: Male

DRUGS (9)
  1. RAPAMUNE [Suspect]
  2. NITRODERM [Concomitant]
     Dosage: DOSE AND FREQUENCY UNKNOWN, SINCE LONG TIME
     Route: 062
  3. AMLODIPINE [Concomitant]
     Dosage: SINCE LONG TIME, DOSE AND FREQUENCY UNKNOWN
     Route: 048
  4. NEXIUM [Concomitant]
     Dosage: SINCE LONG TIME, DOSE AND FREQUENCY UNKNOWN
     Route: 048
  5. LORAZEPAM [Concomitant]
     Dosage: SINCE LONG TIME, DOSE AND FREQUENCY UNKNOWN
     Route: 048
  6. CERTICAN [Suspect]
     Route: 048
     Dates: start: 20100101, end: 20100301
  7. NOZINAN [Concomitant]
     Dosage: SINCE LONG TIME, DOSE AND FREQUENCY UNKNOWN
  8. NOVALGIN [Suspect]
     Indication: PAIN
     Dosage: SHORT TERM, STOPPED 19-MAR-2010, DOSE AND FREQUENCY UNKNOWN
     Route: 048
  9. MAPROTILINE MESILATE [Concomitant]
     Dosage: SINCE LONG TIME, DOSE AND FREQUENCY UNKNOWN
     Route: 048

REACTIONS (6)
  - CONDITION AGGRAVATED [None]
  - GENERAL PHYSICAL HEALTH DETERIORATION [None]
  - HYDRONEPHROSIS [None]
  - PAIN [None]
  - RENAL FAILURE CHRONIC [None]
  - TUBULOINTERSTITIAL NEPHRITIS [None]
